FAERS Safety Report 14343080 (Version 1)
Quarter: 2017Q4

REPORT INFORMATION
  Report Type: Spontaneous
  Country: US (occurrence: US)
  Receive Date: 20171231
  Receipt Date: 20171231
  Transmission Date: 20180321
  Serious: Yes (Death)
  Sender: FDA-Public Use
  Company Number: None

PATIENT
  Age: 66 Year
  Sex: Male
  Weight: 60.75 kg

DRUGS (3)
  1. ZOLEPHIN [Concomitant]
  2. ENTYVIO [Suspect]
     Active Substance: VEDOLIZUMAB
     Indication: COLITIS ULCERATIVE
  3. UCERIS [Concomitant]
     Active Substance: BUDESONIDE

REACTIONS (1)
  - T-cell lymphoma [None]

NARRATIVE: CASE EVENT DATE: 20170531
